FAERS Safety Report 16878237 (Version 2)
Quarter: 2019Q4

REPORT INFORMATION
  Report Type: Spontaneous
  Country: CH (occurrence: ES)
  Receive Date: 20191002
  Receipt Date: 20191021
  Transmission Date: 20200122
  Serious: Yes (Other)
  Sender: FDA-Public Use
  Company Number: ES-ASTELLAS-2019US034133

PATIENT
  Age: 46 Year
  Sex: Male
  Weight: 64 kg

DRUGS (14)
  1. ISAVUCONAZOLE [Suspect]
     Active Substance: ISAVUCONAZOLE
     Indication: BRONCHOPULMONARY ASPERGILLOSIS
     Route: 048
     Dates: start: 20190519, end: 20190805
  2. METHYLPREDNISOLONE. [Concomitant]
     Active Substance: METHYLPREDNISOLONE
     Indication: PRODUCT USED FOR UNKNOWN INDICATION
     Dosage: 30 MG, TWICE DAILY (30 IN MORNING, 30 N THE AFTERNOON)
     Route: 065
  3. MAGNESIUM [Concomitant]
     Active Substance: MAGNESIUM
     Indication: PRODUCT USED FOR UNKNOWN INDICATION
     Route: 042
  4. MONTELUCAST [Concomitant]
     Active Substance: MONTELUKAST SODIUM
     Indication: PRODUCT USED FOR UNKNOWN INDICATION
     Route: 065
  5. HIDROFEROL [Concomitant]
     Active Substance: CALCIFEDIOL
     Indication: PRODUCT USED FOR UNKNOWN INDICATION
     Dosage: 1 DF (0.266), MONTHLY
  6. PANTECTA [Concomitant]
     Active Substance: PANTOPRAZOLE SODIUM
     Indication: PRODUCT USED FOR UNKNOWN INDICATION
     Route: 065
  7. ACFOL [Concomitant]
     Active Substance: FOLIC ACID
     Indication: PRODUCT USED FOR UNKNOWN INDICATION
     Dosage: 5 MG, ONCE DAILY (1 HOUR BEFORE THE MEAL)
     Route: 065
  8. ISAVUCONAZOLE [Suspect]
     Active Substance: ISAVUCONAZOLE
     Dosage: UNK, UNKNOWN FREQ.
     Route: 042
     Dates: start: 20191002
  9. ACICLOVIR [Concomitant]
     Active Substance: ACYCLOVIR
     Indication: PRODUCT USED FOR UNKNOWN INDICATION
     Dosage: 1600 MG, ONCE DAILY (800 MG BREAKFAST 800 MG SUPPER)
     Route: 065
  10. SEPTRIN [Concomitant]
     Active Substance: SULFAMETHOXAZOLE\TRIMETHOPRIM
     Indication: PRODUCT USED FOR UNKNOWN INDICATION
     Dosage: UNK UNK, ONCE DAILY
     Route: 065
  11. AMPHOTERICIN B, LIPOSOME [Concomitant]
     Active Substance: AMPHOTERICIN B
     Indication: PRODUCT USED FOR UNKNOWN INDICATION
     Dosage: UNK UNK, UNKNOWN FREQ.
     Route: 065
     Dates: end: 20190610
  12. AZITHROMYCIN ANHYDROUS. [Concomitant]
     Active Substance: AZITHROMYCIN ANHYDROUS
     Indication: PRODUCT USED FOR UNKNOWN INDICATION
     Dosage: 250 MG, UNKNOWN FREQ. (ONE IN 48 HOURS)
     Route: 065
  13. REANDRON [Concomitant]
     Active Substance: TESTOSTERONE
     Indication: PRODUCT USED FOR UNKNOWN INDICATION
     Dosage: 1 DF, OTHER (EVERY 3 MONTH)
     Route: 030
  14. PROGRAF [Concomitant]
     Active Substance: TACROLIMUS
     Indication: PRODUCT USED FOR UNKNOWN INDICATION
     Route: 065

REACTIONS (3)
  - Product use in unapproved indication [Unknown]
  - Bronchopulmonary aspergillosis [Not Recovered/Not Resolved]
  - Infection [Not Recovered/Not Resolved]

NARRATIVE: CASE EVENT DATE: 20190729
